FAERS Safety Report 9312409 (Version 2)
Quarter: 2013Q2

REPORT INFORMATION
  Report Type: Spontaneous
  Country: FR (occurrence: FR)
  Receive Date: 20130528
  Receipt Date: 20130613
  Transmission Date: 20140414
  Serious: Yes (Other)
  Sender: FDA-Public Use
  Company Number: CHPA2013FR008898

PATIENT
  Age: 74 Year
  Sex: Female

DRUGS (1)
  1. SCOPODERM TTS [Suspect]
     Indication: MOTION SICKNESS
     Dosage: 1 DF, Q72H
     Route: 062
     Dates: start: 20130511, end: 20130520

REACTIONS (3)
  - Vertigo [Recovered/Resolved]
  - Nausea [Recovered/Resolved]
  - Balance disorder [Recovered/Resolved]
